FAERS Safety Report 5965778-4 (Version None)
Quarter: 2008Q4

REPORT INFORMATION
  Report Type: 
  Country: None (occurrence: None)
  Receive Date: 20081125
  Receipt Date: 20080717
  Transmission Date: 20090506
  Serious: No
  Sender: FDA-Public Use
  Company Number: US-AMGEN-US295608

PATIENT
  Sex: Male

DRUGS (3)
  1. VECTIBIX [Suspect]
     Indication: COLORECTAL CANCER
     Dates: start: 20080625
  2. BENADRYL [Concomitant]
     Route: 065
  3. SODIUM CHLORIDE 0.9% [Concomitant]
     Route: 065

REACTIONS (1)
  - CARCINOEMBRYONIC ANTIGEN INCREASED [None]
